FAERS Safety Report 4636397-7 (Version None)
Quarter: 2005Q2

REPORT INFORMATION
  Report Type: 
  Country: None (occurrence: None)
  Receive Date: 20050415
  Receipt Date: 20050406
  Transmission Date: 20051028
  Serious: Yes (Other)
  Sender: FDA-Public Use
  Company Number: DE-JNJFOC-20050105273

PATIENT
  Age: 17 Year
  Sex: Male

DRUGS (4)
  1. TOPAMAX [Suspect]
     Route: 049
  2. TOPAMAX [Suspect]
     Route: 049
  3. TOPAMAX [Suspect]
     Route: 049
  4. TOPAMAX [Suspect]
     Indication: EPILEPSY
     Route: 049

REACTIONS (2)
  - OPTIC NEURITIS [None]
  - VISUAL DISTURBANCE [None]
